FAERS Safety Report 9599768 (Version 1)
Quarter: 2013Q4

REPORT INFORMATION
  Report Type: Spontaneous
  Country: US (occurrence: US)
  Receive Date: 20131004
  Receipt Date: 20131004
  Transmission Date: 20140711
  Serious: No
  Sender: FDA-Public Use
  Company Number: US-AMGEN-USASP2013031370

PATIENT
  Age: 61 Year
  Sex: Female
  Weight: 66.21 kg

DRUGS (13)
  1. DULERA [Concomitant]
     Dosage: 100-5 MCG
  2. ALBUTEROL                          /00139501/ [Concomitant]
     Dosage: 90 MCG
  3. PAXIL                              /00500401/ [Concomitant]
     Dosage: 20 MG, UNK
  4. TOPROL [Concomitant]
     Dosage: 50 MG, UNK
  5. LIPITOR [Concomitant]
     Dosage: 20 MG, UNK
  6. ENBREL [Suspect]
     Indication: PRODUCT USED FOR UNKNOWN INDICATION
     Dosage: 50 MG, QWK
     Route: 058
  7. CELEBREX [Concomitant]
     Dosage: 200 MG, UNK
  8. ARAVA [Concomitant]
     Dosage: UNK
  9. MUCINEX D [Concomitant]
     Dosage: 60-600 MG
  10. ZANTAC [Concomitant]
     Dosage: 75 MG, UNK
  11. THEOPHYLLINE [Concomitant]
     Dosage: 125 MG, UNK
  12. VITAMIN D                          /00107901/ [Concomitant]
     Dosage: 1000 UNIT, UNK
  13. SPIRIVA HANDIHALER [Concomitant]
     Dosage: UNK

REACTIONS (5)
  - Injection site pruritus [Unknown]
  - Injection site reaction [Unknown]
  - Injection site warmth [Unknown]
  - Injection site erythema [Unknown]
  - Injection site swelling [Unknown]
